FAERS Safety Report 7640880-X (Version None)
Quarter: 2011Q3

REPORT INFORMATION
  Report Type: 
  Country: None (occurrence: None)
  Receive Date: 20110728
  Receipt Date: 20110728
  Transmission Date: 20111222
  Serious: Yes (Hospitalization)
  Sender: FDA-Public Use
  Company Number: None

PATIENT
  Age: 48 Year
  Sex: Female
  Weight: 84.821 kg

DRUGS (1)
  1. LAMOTRIGINE [Suspect]
     Indication: MOOD SWINGS
     Dosage: 25MG
     Route: 048
     Dates: start: 20110315, end: 20110613

REACTIONS (14)
  - ARTHRITIS [None]
  - BREAST INFECTION [None]
  - RASH [None]
  - BLOOD TRIGLYCERIDES INCREASED [None]
  - DISEASE RECURRENCE [None]
  - SOMNOLENCE [None]
  - BACK PAIN [None]
  - ADVERSE DRUG REACTION [None]
  - CONFUSIONAL STATE [None]
  - FATIGUE [None]
  - BREAST CYST [None]
  - MERALGIA PARAESTHETICA [None]
  - PHOTOSENSITIVITY REACTION [None]
  - MUSCLE SPASMS [None]
